FAERS Safety Report 4265979-X (Version None)
Quarter: 2004Q1

REPORT INFORMATION
  Report Type: 
  Country: None (occurrence: None)
  Receive Date: 20040107
  Receipt Date: 20031024
  Transmission Date: 20041129
  Serious: Yes (Life-Threatening, Hospitalization)
  Sender: FDA-Public Use
  Company Number: PHBS2003JP11823

PATIENT
  Age: 84 Year
  Sex: Male

DRUGS (5)
  1. MUCOSTA [Concomitant]
     Dosage: 200 MG/DAY
     Route: 048
     Dates: start: 19991214
  2. ACARDI [Suspect]
     Indication: CARDIAC FAILURE CONGESTIVE
     Dosage: 2.5 G/DAY
     Route: 048
     Dates: start: 19990219
  3. FRANDOL [Suspect]
     Indication: CARDIAC FAILURE CONGESTIVE
     Dosage: 1 DF/DAY
     Route: 062
     Dates: start: 19990219
  4. DIOVAN [Suspect]
     Indication: HYPERTENSION
     Dosage: 80 MG/DAY
     Route: 048
     Dates: start: 20010828
  5. APRESOLINE [Concomitant]

REACTIONS (9)
  - BLADDER NEOPLASM [None]
  - DIZZINESS [None]
  - HAEMOGLOBIN DECREASED [None]
  - MYELODYSPLASTIC SYNDROME [None]
  - PANCYTOPENIA [None]
  - PLATELET COUNT DECREASED [None]
  - RED BLOOD CELL COUNT DECREASED [None]
  - TREATMENT NONCOMPLIANCE [None]
  - WHITE BLOOD CELL COUNT DECREASED [None]
